FAERS Safety Report 22521871 (Version 1)
Quarter: 2023Q2

REPORT INFORMATION
  Report Type: Spontaneous
  Country: HU (occurrence: HU)
  Receive Date: 20230605
  Receipt Date: 20230605
  Transmission Date: 20230722
  Serious: Yes (Hospitalization)
  Sender: FDA-Public Use
  Company Number: HU-GRINDPROD-2023002700

PATIENT
  Age: 22 Year
  Sex: Female

DRUGS (7)
  1. AMLODIPINE [Suspect]
     Active Substance: AMLODIPINE BESYLATE
     Indication: Product used for unknown indication
     Dosage: 5 MG (5 MG PER OS AMLODIPINE)
     Route: 048
  2. NITROGLYCERIN [Suspect]
     Active Substance: NITROGLYCERIN
     Indication: Product used for unknown indication
     Dosage: 5 MG, QD (5MG/24 H GLYCEROL TRINITRATE TRANSDERMAL PATCH)
     Route: 062
  3. MANNITOL [Suspect]
     Active Substance: MANNITOL
     Indication: Product used for unknown indication
     Dosage: 100 ML (100 ML MANNISOL B INFUSION)
     Route: 042
  4. METHYLDOPA [Suspect]
     Active Substance: METHYLDOPA
     Indication: Product used for unknown indication
     Dosage: 25 MG, Q8H (~3X25MG PER OS METHYLDOPA)
     Route: 048
  5. ENOXAPARIN SODIUM [Suspect]
     Active Substance: ENOXAPARIN SODIUM
     Indication: Product used for unknown indication
     Dosage: 0.6 ML (0.6 ML SUBCUTANEOUS ENOXAPARIN SODIUM)
     Route: 058
  6. URAPIDIL [Suspect]
     Active Substance: URAPIDIL
     Indication: Blood pressure increased
     Dosage: 10 MG (10 MG INTRAVENOUS URADIPIL)
     Route: 042
  7. OXYGEN [Concomitant]
     Active Substance: OXYGEN
     Indication: Product used for unknown indication
     Dosage: 7 L (7 L/MIN OXYGEN VIA NASOGASTRIC TUBE)
     Route: 065

REACTIONS (4)
  - Hallucination [Recovered/Resolved]
  - Posterior reversible encephalopathy syndrome [Recovered/Resolved]
  - Agitation [Recovered/Resolved]
  - Aphasia [Recovered/Resolved]
